FAERS Safety Report 9838619 (Version 1)
Quarter: 2014Q1

REPORT INFORMATION
  Report Type: Report from Study
  Country: DE (occurrence: DE)
  Receive Date: 20140123
  Receipt Date: 20140123
  Transmission Date: 20141002
  Serious: No
  Sender: FDA-Public Use
  Company Number: PHHY2014DE007663

PATIENT
  Sex: Male

DRUGS (6)
  1. AMN107 [Suspect]
     Indication: CHRONIC MYELOID LEUKAEMIA
     Dosage: 600 MG, PER DAY
     Route: 048
     Dates: start: 20131021
  2. UNACID [Concomitant]
     Dosage: 375 MG, UNK
     Dates: start: 20130929, end: 20131004
  3. OMEBETA [Concomitant]
     Dosage: 40 MG, UNK
  4. HYDROXYCARBAMID [Concomitant]
     Dosage: 500 MG, UNK
     Dates: start: 20131014, end: 20131020
  5. ALLOPURINOL [Concomitant]
     Dosage: 300 MG, UNK
     Dates: start: 20131017
  6. IBUPROFEN [Concomitant]
     Dosage: 400 MG, UNK
     Dates: start: 20131017

REACTIONS (2)
  - Asthenia [Not Recovered/Not Resolved]
  - Fatigue [Not Recovered/Not Resolved]
